FAERS Safety Report 16462213 (Version 6)
Quarter: 2023Q2

REPORT INFORMATION
  Report Type: Report from Study
  Country: US (occurrence: US)
  Receive Date: 20190621
  Receipt Date: 20230619
  Transmission Date: 20230722
  Serious: No
  Sender: FDA-Public Use
  Company Number: US-KYOWAKIRIN-2019BKK009596

PATIENT

DRUGS (8)
  1. POTELIGEO [Suspect]
     Active Substance: MOGAMULIZUMAB-KPKC
     Indication: Cutaneous T-cell lymphoma
     Dosage: UNK, 1X/2 WEEKS
     Route: 065
     Dates: start: 2019, end: 2019
  2. POTELIGEO [Suspect]
     Active Substance: MOGAMULIZUMAB-KPKC
     Dosage: UNK, 1X/4 WEEKS
     Route: 065
     Dates: start: 2019, end: 2019
  3. POTELIGEO [Suspect]
     Active Substance: MOGAMULIZUMAB-KPKC
     Dosage: UNK, 1X/WEEK
     Route: 065
     Dates: start: 20190606, end: 20200102
  4. POTELIGEO [Suspect]
     Active Substance: MOGAMULIZUMAB-KPKC
     Dosage: UNK
     Route: 042
     Dates: start: 20190616, end: 20191121
  5. GABAPENTIN [Concomitant]
     Active Substance: GABAPENTIN
     Indication: Pruritus
     Dosage: UNK
     Route: 065
  6. PREDNISONE [Concomitant]
     Active Substance: PREDNISONE
     Indication: Product used for unknown indication
     Dosage: 10 MG
     Route: 065
     Dates: start: 201911
  7. PREDNISONE [Concomitant]
     Active Substance: PREDNISONE
     Dosage: 30 MG
     Route: 065
     Dates: start: 201911
  8. PREDNISONE [Concomitant]
     Active Substance: PREDNISONE
     Dosage: 129 MG, QD
     Route: 065

REACTIONS (22)
  - Arthropathy [Unknown]
  - Tremor [Recovered/Resolved]
  - Haemoglobin decreased [Unknown]
  - Arthritis [Recovered/Resolved]
  - Onychoclasis [Unknown]
  - Infusion site reaction [Unknown]
  - Arthralgia [Recovering/Resolving]
  - Temperature intolerance [Unknown]
  - Skin exfoliation [Unknown]
  - Peripheral swelling [Unknown]
  - Musculoskeletal pain [Recovering/Resolving]
  - Hypertension [Recovered/Resolved]
  - Dyspnoea [Recovered/Resolved]
  - Pruritus [Recovered/Resolved]
  - Chills [Recovered/Resolved]
  - White blood cell count decreased [Unknown]
  - Decreased appetite [Recovered/Resolved]
  - Rash [Recovered/Resolved]
  - Rash macular [Unknown]
  - Drug eruption [Recovering/Resolving]
  - Fatigue [Not Recovered/Not Resolved]
  - Inappropriate schedule of product administration [Recovered/Resolved]

NARRATIVE: CASE EVENT DATE: 20190101
